FAERS Safety Report 6753723-3 (Version None)
Quarter: 2010Q2

REPORT INFORMATION
  Report Type: 
  Country: None (occurrence: None)
  Receive Date: 20100603
  Receipt Date: 20100531
  Transmission Date: 20101027
  Serious: Yes (Other)
  Sender: FDA-Public Use
  Company Number: CH-ROCHE-706226

PATIENT
  Age: 55 Year
  Sex: Female

DRUGS (3)
  1. BEVACIZUMAB [Suspect]
     Route: 042
     Dates: start: 20090916, end: 20100211
  2. TAXOL [Suspect]
     Route: 065
     Dates: start: 20090916
  3. TAXOL [Suspect]
     Route: 065
     Dates: start: 20091111, end: 20100211

REACTIONS (2)
  - MALIGNANT NEOPLASM PROGRESSION [None]
  - POLYNEUROPATHY [None]
